FAERS Safety Report 10102188 (Version 1)
Quarter: 2014Q2

REPORT INFORMATION
  Report Type: Spontaneous
  Country: US (occurrence: US)
  Receive Date: 20140424
  Receipt Date: 20140424
  Transmission Date: 20141212
  Serious: No
  Sender: FDA-Public Use
  Company Number: US-PFIZER INC-2014113380

PATIENT
  Sex: Male

DRUGS (4)
  1. LYRICA [Suspect]
     Indication: PAIN IN EXTREMITY
     Dosage: 400 MG, UNK
  2. LYRICA [Suspect]
     Dosage: 300 MG, UNK
  3. LYRICA [Suspect]
     Dosage: 200 MG, UNK
  4. LYRICA [Suspect]
     Dosage: 100 MG, UNK
     Dates: end: 201404

REACTIONS (3)
  - Hypersensitivity [Unknown]
  - Urticaria [Unknown]
  - Rash generalised [Unknown]
